FAERS Safety Report 8629487 (Version 2)
Quarter: 2013Q1

REPORT INFORMATION
  Report Type: Spontaneous
  Country: AR (occurrence: AR)
  Receive Date: 20120622
  Receipt Date: 20130304
  Transmission Date: 20140127
  Serious: Yes (Hospitalization, Other)
  Sender: FDA-Public Use
  Company Number: AR-ACCORD-013754

PATIENT
  Age: 57 Year
  Sex: Male

DRUGS (4)
  1. MEPREDNISONE [Concomitant]
     Indication: IMMUNOSUPPRESSION
  2. MYCOPHENOLATE MOFETIL [Suspect]
     Indication: IMMUNOSUPPRESSION
  3. LOSARTAN [Concomitant]
     Indication: HYPERTENSION
  4. FENOFIBRATE [Interacting]
     Indication: BLOOD TRIGLYCERIDES INCREASED
     Dosage: MICRONIZED FENOFIBRATE

REACTIONS (2)
  - Febrile neutropenia [Recovering/Resolving]
  - Drug interaction [Recovered/Resolved]
